FAERS Safety Report 5250650-8 (Version None)
Quarter: 2007Q1

REPORT INFORMATION
  Report Type: 
  Country: None (occurrence: None)
  Receive Date: 20070228
  Receipt Date: 20060612
  Transmission Date: 20070707
  Serious: No
  Sender: FDA-Public Use
  Company Number: US-GLAXOSMITHKLINE-A0608639A

PATIENT
  Age: 20 Year
  Sex: Male

DRUGS (2)
  1. LAMICTAL [Suspect]
     Indication: EPILEPSY
     Dosage: 500MG PER DAY
     Route: 048
     Dates: start: 20051201
  2. LEXAPRO [Concomitant]

REACTIONS (3)
  - ABDOMINAL PAIN UPPER [None]
  - AGITATION [None]
  - HAEMATOCHEZIA [None]
